FAERS Safety Report 14838036 (Version 1)
Quarter: 2018Q2

REPORT INFORMATION
  Report Type: Spontaneous
  Country: SE (occurrence: SE)
  Receive Date: 20180502
  Receipt Date: 20180502
  Transmission Date: 20180711
  Serious: Yes (Other)
  Sender: FDA-Public Use
  Company Number: SE-BAYER-2018-081067

PATIENT
  Age: 35 Year
  Sex: Female

DRUGS (1)
  1. LEVONORGESTREL IUS [UNKNOWN] [Suspect]
     Active Substance: LEVONORGESTREL
     Dosage: UNK
     Dates: start: 201802

REACTIONS (5)
  - Suicide attempt [Recovered/Resolved]
  - Anxiety [None]
  - Depressed mood [Recovered/Resolved]
  - Weight decreased [None]
  - Asthenia [Recovered/Resolved]
